FAERS Safety Report 13072107 (Version 1)
Quarter: 2016Q4

REPORT INFORMATION
  Report Type: Spontaneous
  Country: CH (occurrence: CH)
  Receive Date: 20161229
  Receipt Date: 20161229
  Transmission Date: 20170207
  Serious: Yes (Hospitalization, Other)
  Sender: FDA-Public Use
  Company Number: CH-SA-2016SA232907

PATIENT
  Age: 36 Year
  Sex: Female

DRUGS (3)
  1. STILNOX CR [Suspect]
     Active Substance: ZOLPIDEM TARTRATE
     Indication: BORDERLINE PERSONALITY DISORDER
     Dosage: FORMULATION: COATED TABLETS
     Route: 048
     Dates: start: 2015, end: 20160422
  2. TRUXAL [Suspect]
     Active Substance: CHLORPROTHIXENE
     Indication: BORDERLINE PERSONALITY DISORDER
     Route: 048
     Dates: start: 2016
  3. TRITTICO [Suspect]
     Active Substance: TRAZODONE HYDROCHLORIDE
     Indication: DEPRESSION
     Route: 048
     Dates: start: 2015

REACTIONS (4)
  - Eating disorder [Unknown]
  - Exposure during pregnancy [Unknown]
  - Premature rupture of membranes [Unknown]
  - Gestational diabetes [Recovered/Resolved]

NARRATIVE: CASE EVENT DATE: 2016
